FAERS Safety Report 24397401 (Version 2)
Quarter: 2024Q4

REPORT INFORMATION
  Report Type: Spontaneous
  Country: US (occurrence: US)
  Receive Date: 20241004
  Receipt Date: 20241126
  Transmission Date: 20250114
  Serious: No
  Sender: SANOFI AVENTIS
  Company Number: US-SA-2024SA285217

PATIENT
  Age: 4 Year
  Sex: Male

DRUGS (1)
  1. NEXVIAZYME [Suspect]
     Active Substance: AVALGLUCOSIDASE ALFA-NGPT
     Dosage: 600 MG, QOW
     Route: 042
     Dates: start: 202310

REACTIONS (3)
  - Rhinovirus infection [Unknown]
  - Heart rate increased [Unknown]
  - Dyspnoea [Unknown]

NARRATIVE: CASE EVENT DATE: 20240913
